FAERS Safety Report 6244984-8 (Version None)
Quarter: 2009Q2

REPORT INFORMATION
  Report Type: 
  Country: None (occurrence: None)
  Receive Date: 20090623
  Receipt Date: 20090623
  Transmission Date: 20091009
  Serious: Yes (Other)
  Sender: FDA-Public Use
  Company Number: None

PATIENT
  Age: 33 Year
  Sex: Female
  Weight: 78.4723 kg

DRUGS (1)
  1. DOXYCYCLINE HYCLATE [Suspect]
     Indication: ROSACEA
     Dosage: ONE A DAY PO
     Route: 048
     Dates: start: 20090409, end: 20090619

REACTIONS (2)
  - MENSTRUATION IRREGULAR [None]
  - OLIGOMENORRHOEA [None]
